FAERS Safety Report 5886185-9 (Version None)
Quarter: 2008Q3

REPORT INFORMATION
  Report Type: 
  Country: None (occurrence: None)
  Receive Date: 20080917
  Receipt Date: 20080910
  Transmission Date: 20090109
  Serious: Yes (Hospitalization)
  Sender: FDA-Public Use
  Company Number: FR-ASTRAZENECA-2008CG01150

PATIENT
  Age: 59 Year
  Sex: Male

DRUGS (11)
  1. NEXIUM [Suspect]
     Route: 042
     Dates: start: 20080701, end: 20080706
  2. TIENAM [Suspect]
     Route: 042
     Dates: start: 20080701, end: 20080719
  3. PRIMPERAN INJ [Concomitant]
     Route: 042
  4. VITAMIN K1 [Concomitant]
     Route: 042
  5. CIPROFLOXACIN HCL [Concomitant]
     Route: 042
  6. CANCIDAS [Concomitant]
     Route: 042
  7. DOBUTAMINE PANPHARMA [Concomitant]
  8. ACTRAPID [Concomitant]
  9. ZOPHREN [Concomitant]
  10. ZYVOXID [Concomitant]
  11. FUROSEMIDE RENAUDIN [Concomitant]

REACTIONS (1)
  - CHOLESTASIS [None]
